FAERS Safety Report 13212435 (Version 1)
Quarter: 2017Q1

REPORT INFORMATION
  Report Type: Spontaneous
  Country: CN (occurrence: CN)
  Receive Date: 20170210
  Receipt Date: 20170210
  Transmission Date: 20170428
  Serious: Yes (Other)
  Sender: FDA-Public Use
  Company Number: CN-PFIZER INC-2017058394

PATIENT
  Age: 66 Year
  Sex: Female
  Weight: 60 kg

DRUGS (3)
  1. MUCOSOLVIN [Concomitant]
     Indication: RESPIRATORY TRACT INFECTION
     Dosage: 45 MG, 3X/DAY
     Route: 042
     Dates: start: 20131115, end: 20131125
  2. SULPERAZON [Concomitant]
     Active Substance: CEFOPERAZONE SODIUM\SULBACTAM SODIUM
     Indication: RESPIRATORY TRACT INFECTION
     Dosage: 3 G, 3X/DAY
     Route: 041
     Dates: start: 20131111, end: 20131120
  3. DIFLUCAN [Suspect]
     Active Substance: FLUCONAZOLE
     Indication: RESPIRATORY TRACT INFECTION
     Dosage: 400 MG, 1X/DAY
     Route: 041
     Dates: start: 20131107, end: 20131121

REACTIONS (3)
  - Renal impairment [Recovering/Resolving]
  - Oliguria [Unknown]
  - Blood creatinine increased [Recovered/Resolved]

NARRATIVE: CASE EVENT DATE: 20131121
